APPROVED DRUG PRODUCT: OXYCODONE AND ACETAMINOPHEN
Active Ingredient: ACETAMINOPHEN; OXYCODONE HYDROCHLORIDE
Strength: 325MG;10MG
Dosage Form/Route: TABLET;ORAL
Application: A207834 | Product #003
Applicant: CHARTWELL SCHEDULED LLC
Approved: Aug 15, 2019 | RLD: No | RS: No | Type: DISCN